FAERS Safety Report 6306358-0 (Version None)
Quarter: 2009Q3

REPORT INFORMATION
  Report Type: 
  Country: None (occurrence: None)
  Receive Date: 20090812
  Receipt Date: 20090803
  Transmission Date: 20100115
  Serious: Yes (Life-Threatening, Other)
  Sender: FDA-Public Use
  Company Number: GB-ELI_LILLY_AND_COMPANY-GB200908000121

PATIENT
  Age: 46 Year
  Sex: Male

DRUGS (7)
  1. OLANZAPINE [Suspect]
     Indication: PSYCHOTIC DISORDER
     Dosage: 10 MG, UNK
     Route: 048
     Dates: start: 20090331, end: 20090402
  2. CARBAMAZEPINE [Concomitant]
     Dosage: 400 MG, DAILY (1/D)
  3. CIPRALEX [Concomitant]
     Indication: DEPRESSION
     Dosage: 20 MG, UNK
     Route: 048
  4. LAMOTRIGINE [Concomitant]
     Indication: DEPRESSION
     Dosage: 100 MG, 2/D
     Route: 048
  5. LEVOTHYROXINE [Concomitant]
     Indication: HYPOTHYROIDISM
     Dosage: 50 MG, DAILY (1/D)
     Route: 048
  6. METOCLOPRAMIDE [Concomitant]
     Dosage: 10 MG, 2/D
     Route: 048
  7. SIMVASTATIN [Concomitant]
     Dosage: 40 MG, DAILY (1/D)

REACTIONS (1)
  - LACUNAR INFARCTION [None]
